FAERS Safety Report 7514870-1 (Version None)
Quarter: 2011Q2

REPORT INFORMATION
  Report Type: 
  Country: None (occurrence: None)
  Receive Date: 20110601
  Receipt Date: 20110519
  Transmission Date: 20111010
  Serious: Yes (Other)
  Sender: FDA-Public Use
  Company Number: US-JNJFOC-20110509773

PATIENT
  Sex: Female
  Weight: 70.76 kg

DRUGS (2)
  1. FENTANYL-100 [Suspect]
     Indication: NEURALGIA
     Route: 062
     Dates: start: 20110301, end: 20110401
  2. FENTANYL-100 [Suspect]
     Route: 062
     Dates: start: 20110401, end: 20110517

REACTIONS (13)
  - HEART RATE IRREGULAR [None]
  - GAIT DISTURBANCE [None]
  - CONFUSIONAL STATE [None]
  - BALANCE DISORDER [None]
  - PRODUCT QUALITY ISSUE [None]
  - HEART RATE INCREASED [None]
  - CONTUSION [None]
  - MICTURITION DISORDER [None]
  - SOMNOLENCE [None]
  - FALL [None]
  - DIZZINESS [None]
  - PULSE PRESSURE DECREASED [None]
  - HEAD INJURY [None]
